FAERS Safety Report 6597697-7 (Version None)
Quarter: 2010Q1

REPORT INFORMATION
  Report Type: 
  Country: None (occurrence: None)
  Receive Date: 20100223
  Receipt Date: 20100216
  Transmission Date: 20100710
  Serious: Yes (Hospitalization)
  Sender: FDA-Public Use
  Company Number: US-AMGEN-QUU393089

PATIENT
  Sex: Male
  Weight: 100 kg

DRUGS (8)
  1. NPLATE [Suspect]
     Indication: DRUG USE FOR UNKNOWN INDICATION
  2. PREDNISONE [Concomitant]
  3. ROCEPHIN [Concomitant]
  4. PRILOSEC [Concomitant]
  5. GUAIFENESIN [Concomitant]
  6. INSULIN [Concomitant]
  7. NORMAL SALINE [Concomitant]
     Route: 042
     Dates: start: 20100216
  8. RITUXAN [Concomitant]

REACTIONS (3)
  - HAEMOLYSIS [None]
  - TACHYCARDIA [None]
  - THROMBOCYTOPENIA [None]
